FAERS Safety Report 20652354 (Version 3)
Quarter: 2022Q2

REPORT INFORMATION
  Report Type: Spontaneous
  Country: ES (occurrence: ES)
  Receive Date: 20220330
  Receipt Date: 20220413
  Transmission Date: 20220721
  Serious: Yes (Other)
  Sender: FDA-Public Use
  Company Number: ES-BAUSCH-BL-2022-007166

PATIENT
  Sex: Female

DRUGS (3)
  1. BRIMONIDINE [Suspect]
     Active Substance: BRIMONIDINE TARTRATE
     Indication: Open angle glaucoma
     Route: 061
  2. BIMATOPROST [Suspect]
     Active Substance: BIMATOPROST
     Indication: Open angle glaucoma
     Route: 061
  3. BRINZOLAMIDE\TIMOLOL [Concomitant]
     Active Substance: BRINZOLAMIDE\TIMOLOL
     Indication: Open angle glaucoma

REACTIONS (1)
  - Uveitis [Recovered/Resolved]
